FAERS Safety Report 6510388-3 (Version None)
Quarter: 2009Q4

REPORT INFORMATION
  Report Type: 
  Country: None (occurrence: None)
  Receive Date: 20091222
  Receipt Date: 20091215
  Transmission Date: 20100525
  Serious: Yes (Hospitalization)
  Sender: FDA-Public Use
  Company Number: A0836041A

PATIENT
  Age: 53 Year
  Sex: Female

DRUGS (1)
  1. AVANDIA [Suspect]
     Dosage: 8MG PER DAY
     Route: 065
     Dates: start: 20000101

REACTIONS (6)
  - ARTHRITIS [None]
  - BIPOLAR DISORDER [None]
  - CHEST PAIN [None]
  - MULTIPLE FRACTURES [None]
  - PAIN [None]
  - PANIC ATTACK [None]
